FAERS Safety Report 9582641 (Version 1)
Quarter: 2013Q4

REPORT INFORMATION
  Report Type: Spontaneous
  Country: US (occurrence: US)
  Receive Date: 20131002
  Receipt Date: 20131002
  Transmission Date: 20140711
  Serious: No
  Sender: FDA-Public Use
  Company Number: US-AMGEN-USASP2013041694

PATIENT
  Age: 66 Year
  Sex: Female

DRUGS (2)
  1. ENBREL [Suspect]
     Indication: RHEUMATOID ARTHRITIS
     Dosage: 50 MG, QWK
     Route: 065
     Dates: start: 20050101
  2. METHOTREXATE [Concomitant]
     Dosage: 20 MG, QWK, 2.5MG 8 TABLETES ONCE A WEEKLY
     Dates: end: 20130601

REACTIONS (3)
  - Hepatic enzyme increased [Not Recovered/Not Resolved]
  - Nerve injury [Recovered/Resolved]
  - Injection site pain [Recovered/Resolved]
